FAERS Safety Report 5836779-1 (Version None)
Quarter: 2008Q3

REPORT INFORMATION
  Report Type: 
  Country: None (occurrence: None)
  Receive Date: 20080806
  Receipt Date: 20080806
  Transmission Date: 20090109
  Serious: Yes (Other)
  Sender: FDA-Public Use
  Company Number: None

PATIENT
  Age: 81 Year
  Sex: Female
  Weight: 65.318 kg

DRUGS (1)
  1. LUCENTIS [Suspect]
     Indication: MACULAR DEGENERATION
     Dates: start: 20071002, end: 20080220

REACTIONS (3)
  - LIVING IN RESIDENTIAL INSTITUTION [None]
  - MUSCULAR WEAKNESS [None]
  - MYALGIA [None]
